FAERS Safety Report 18213743 (Version 1)
Quarter: 2020Q3

REPORT INFORMATION
  Report Type: Spontaneous
  Country: US (occurrence: US)
  Receive Date: 20200829
  Receipt Date: 20200829
  Transmission Date: 20201103
  Serious: Yes (Hospitalization)
  Sender: FDA-Public Use
  Company Number: None

PATIENT
  Sex: Female
  Weight: 72.3 kg

DRUGS (1)
  1. GEMCITABINE HYDROCHLORIDE (613327) [Suspect]
     Active Substance: GEMCITABINE HYDROCHLORIDE
     Dates: end: 20200820

REACTIONS (5)
  - Vomiting [None]
  - Abdominal pain [None]
  - Atrial flutter [None]
  - Colitis [None]
  - Constipation [None]

NARRATIVE: CASE EVENT DATE: 20200822
